FAERS Safety Report 6771853-7 (Version None)
Quarter: 2010Q2

REPORT INFORMATION
  Report Type: 
  Country: None (occurrence: None)
  Receive Date: 20100616
  Receipt Date: 20100604
  Transmission Date: 20101027
  Serious: Yes (Death)
  Sender: FDA-Public Use
  Company Number: RU-JNJFOC-20100604576

PATIENT

DRUGS (1)
  1. MEBENDAZOLE [Suspect]
     Indication: ECHINOCOCCIASIS
     Route: 065

REACTIONS (4)
  - GASTRIC DISORDER [None]
  - HEPATIC FAILURE [None]
  - HEPATIC LESION [None]
  - RENAL DISORDER [None]
